FAERS Safety Report 8594475-4 (Version None)
Quarter: 2012Q3

REPORT INFORMATION
  Report Type: 
  Country: None (occurrence: None)
  Receive Date: 20120801
  Receipt Date: 20120719
  Transmission Date: 20120928
  Serious: Yes (Other)
  Sender: FDA-Public Use
  Company Number: FK201202034

PATIENT
  Age: 16 Month
  Sex: Male

DRUGS (6)
  1. CORTICOSTEROIDS (CORTICOSTEROIDS_ [Concomitant]
  2. MYCOPHENOLATE MOFETIL [Concomitant]
  3. TACROLIMUS [Concomitant]
  4. GANCICLOVIR [Concomitant]
  5. METHYLPREDNISOLONE ACETATE [Suspect]
     Indication: TRANSPLANT REJECTION
     Dosage: 20 MG/KG, POST-OP DAY 8: DAILY
  6. DACLIZUMAB (DACLIXIMAB) [Concomitant]

REACTIONS (3)
  - IMMUNOSUPPRESSANT DRUG LEVEL INCREASED [None]
  - ADENOVIRAL HEPATITIS [None]
  - PULMONARY OEDEMA [None]
